FAERS Safety Report 11909902 (Version 1)
Quarter: 2016Q1

REPORT INFORMATION
  Report Type: Spontaneous
  Country: FR (occurrence: FR)
  Receive Date: 20160112
  Receipt Date: 20160112
  Transmission Date: 20160526
  Serious: Yes (Other)
  Sender: FDA-Public Use
  Company Number: FR-MYLANLABS-2016M1000497

PATIENT

DRUGS (2)
  1. DEXAMETHASONE. [Suspect]
     Active Substance: DEXAMETHASONE
     Indication: POEMS SYNDROME
     Dosage: 40 MG WEEKLY
     Route: 065
  2. LENALIDOMIDE [Suspect]
     Active Substance: LENALIDOMIDE
     Indication: POEMS SYNDROME
     Dosage: 25 MG/DAY ON 21 CONSECUTIVE DAYS OF A 28-DAY CYCLE
     Route: 065

REACTIONS (2)
  - Anaemia [Unknown]
  - Thrombocytopenia [Unknown]
